FAERS Safety Report 6828561-3 (Version None)
Quarter: 2010Q3

REPORT INFORMATION
  Report Type: 
  Country: None (occurrence: None)
  Receive Date: 20100709
  Receipt Date: 20070212
  Transmission Date: 20110219
  Serious: No
  Sender: FDA-Public Use
  Company Number: US-PFIZER INC-2007012448

PATIENT
  Sex: Female
  Weight: 92.53 kg

DRUGS (7)
  1. CHANTIX [Suspect]
     Indication: SMOKING CESSATION THERAPY
     Route: 048
     Dates: start: 20070209
  2. ZIAC [Concomitant]
     Indication: HYPERTENSION
  3. LOTREL [Concomitant]
  4. GABAPENTIN [Concomitant]
  5. CALCIUM CARBONATE [Concomitant]
  6. OMEPRAZOLE [Concomitant]
  7. ADVIL LIQUI-GELS [Concomitant]

REACTIONS (1)
  - DIZZINESS [None]
